FAERS Safety Report 10524767 (Version 1)
Quarter: 2014Q4

REPORT INFORMATION
  Report Type: Spontaneous
  Country: US (occurrence: None)
  Receive Date: 20141015
  Receipt Date: 20141015
  Transmission Date: 20150528
  Serious: Yes (Other)
  Sender: FDA-Public Use
  Company Number: None

PATIENT
  Age: 25 Year
  Sex: Female
  Weight: 88.5 kg

DRUGS (2)
  1. DOXYCYCLINE MONOHYDRATE IR [Suspect]
     Active Substance: DOXYCYCLINE
     Indication: RHINITIS
     Dosage: 1 TABLET
     Route: 048
     Dates: start: 20141013, end: 20141013
  2. DOXYCYCLINE MONOHYDRATE IR [Suspect]
     Active Substance: DOXYCYCLINE
     Indication: RASH
     Dosage: 1 TABLET
     Route: 048
     Dates: start: 20141013, end: 20141013

REACTIONS (9)
  - Disorientation [None]
  - Pruritus [None]
  - Discomfort [None]
  - Hyperhidrosis [None]
  - Visual impairment [None]
  - Abdominal pain [None]
  - Pollakiuria [None]
  - Vertigo [None]
  - Abdominal distension [None]

NARRATIVE: CASE EVENT DATE: 20141013
